FAERS Safety Report 23790515 (Version 1)
Quarter: 2024Q2

REPORT INFORMATION
  Report Type: Spontaneous
  Country: ES (occurrence: ES)
  Receive Date: 20240427
  Receipt Date: 20240427
  Transmission Date: 20240715
  Serious: Yes (Hospitalization)
  Sender: FDA-Public Use
  Company Number: None

PATIENT
  Age: 55 Year
  Sex: Female

DRUGS (7)
  1. DOCETAXEL [Suspect]
     Active Substance: DOCETAXEL\DOCETAXEL ANHYDROUS
     Indication: HER2 positive breast cancer
     Dosage: DATE OF LAST DOSE PRIOR TO SAE ONSET: 19/AUG/2013
     Route: 042
     Dates: start: 20130708
  2. PERJETA [Suspect]
     Active Substance: PERTUZUMAB
     Indication: Product used for unknown indication
     Dosage: MAINTENENCE DOSEDATE OF LAST DOSE PRIOR TO SAE ONSET: 19/AUG/2013, CONCENTRATE FOR SOLUTION FOR I...
     Route: 042
     Dates: start: 20130708
  3. MORPHINE SULFATE [Concomitant]
     Active Substance: MORPHINE SULFATE
     Indication: Product used for unknown indication
     Dosage: DATE OF LAST DOSE PRIOR TO SAE ONSET: 19/AUG/2013
     Route: 065
     Dates: start: 20130729, end: 20130819
  4. HERCEPTIN [Suspect]
     Active Substance: TRASTUZUMAB
     Indication: Product used for unknown indication
     Dosage: MAINTENENCE DOSEDATE OF LAST DOSE PRIOR TO SAE ONSET: 19/AUG/2013,HERCEPTIN  POWDER FOR CONCENTRA...
     Route: 042
     Dates: start: 20130708
  5. LOPERAMIDE HYDROCHLORIDE [Concomitant]
     Active Substance: LOPERAMIDE HYDROCHLORIDE
     Indication: Product used for unknown indication
     Dosage: TIME INTERVAL: 1 AS NECESSARY: DATE OF LAST DOSE PRIOR TO SAE ONSET: 19/AUG/2013,FORTASEC, 10 CAP...
     Route: 065
     Dates: start: 20130902
  6. PERJETA [Suspect]
     Active Substance: PERTUZUMAB
     Indication: HER2 positive breast cancer
     Dosage: TIME INTERVAL: TOTAL: LOADING DOSE,PERJETA  1 VIAL OF 14 M
     Route: 042
     Dates: start: 2013
  7. HERCEPTIN [Suspect]
     Active Substance: TRASTUZUMAB
     Indication: HER2 positive breast cancer
     Dosage: TIME INTERVAL: TOTAL: LOADING DOSE,HERCEPTIN , POWDER FOR CONCENTRATE FOR SOLUTION FOR INFUSION
     Route: 042
     Dates: start: 20130708

REACTIONS (1)
  - Diarrhoea [Recovered/Resolved]

NARRATIVE: CASE EVENT DATE: 20130902
